FAERS Safety Report 19754580 (Version 1)
Quarter: 2021Q3

REPORT INFORMATION
  Report Type: Spontaneous
  Country: US (occurrence: US)
  Receive Date: 20210824
  Receipt Date: 20210824
  Transmission Date: 20211014
  Serious: No
  Sender: FDA-Public Use
  Company Number: None

PATIENT
  Age: 54 Year
  Sex: Female

DRUGS (1)
  1. TEMOZOLOMIDE 140MG AMNEAL PHARMACEUTICALS [Suspect]
     Active Substance: TEMOZOLOMIDE
     Indication: BRAIN NEOPLASM
     Dosage: 2 CAPSULES QD FOR 5 DAYS (28 DAY) ORAL
     Route: 048
     Dates: start: 202009

REACTIONS (1)
  - Syncope [None]

NARRATIVE: CASE EVENT DATE: 202108
